FAERS Safety Report 19845836 (Version 10)
Quarter: 2023Q1

REPORT INFORMATION
  Report Type: Other
  Country: US (occurrence: None)
  Receive Date: 20210916
  Receipt Date: 20230119
  Transmission Date: 20230417
  Serious: Yes (Other)
  Sender: FDA-Public Use
  Company Number: US-ROCHE-2910087

PATIENT
  Sex: Female

DRUGS (19)
  1. CELLCEPT [Suspect]
     Active Substance: MYCOPHENOLATE MOFETIL
     Indication: Systemic scleroderma
     Dosage: 2 CAPSULES BID
     Route: 048
     Dates: start: 20200904, end: 20210904
  2. CELLCEPT [Suspect]
     Active Substance: MYCOPHENOLATE MOFETIL
     Dosage: 2 CAPSULE ONCE DAILY
     Route: 048
  3. CELLCEPT [Suspect]
     Active Substance: MYCOPHENOLATE MOFETIL
     Dosage: 250MG CAPSULE
     Route: 048
  4. NORVASC [Concomitant]
     Active Substance: AMLODIPINE BESYLATE
     Route: 048
     Dates: start: 20200904, end: 20201004
  5. QUESTRAN [Concomitant]
     Active Substance: CHOLESTYRAMINE
     Dosage: PACKET 4 GM
     Dates: start: 20200303
  6. LOTRISONE [Concomitant]
     Active Substance: BETAMETHASONE DIPROPIONATE\CLOTRIMAZOLE
     Dosage: 1-0.05% CREAM
     Dates: start: 20170427
  7. PERIACTIN [Concomitant]
     Active Substance: CYPROHEPTADINE HYDROCHLORIDE
     Dates: start: 20200206
  8. LOMOTIL [Concomitant]
     Active Substance: ATROPINE SULFATE\DIPHENOXYLATE HYDROCHLORIDE
     Dosage: 2.5-0.025 MG
     Dates: start: 20170815
  9. NEURONTIN [Concomitant]
     Active Substance: GABAPENTIN
     Dosage: TAKE 1 CAPSULE BID AND 2 CAPSULE AT BEDTIME
     Route: 048
     Dates: start: 20170616
  10. NORCO [Concomitant]
     Active Substance: ACETAMINOPHEN\HYDROCODONE BITARTRATE
     Dosage: 5-325 MG PER TABLET
     Dates: start: 20200228
  11. ICAR-C [Concomitant]
     Dosage: 100-250 MG PER TABLET, TAKE 1 TABLET
     Dates: start: 20200203
  12. BACTROBAN [Concomitant]
     Active Substance: MUPIROCIN\MUPIROCIN CALCIUM
     Dosage: AA EXT AA BID
     Dates: start: 20200203
  13. FISH OIL\OMEGA-3 FATTY ACIDS [Concomitant]
     Active Substance: FISH OIL\OMEGA-3 FATTY ACIDS
     Dosage: 300-500 MG (1 CAPSULE) BY MOUTH DAILY
     Route: 048
  14. PROTONIX [Concomitant]
     Active Substance: PANTOPRAZOLE SODIUM
     Dosage: TAKE 1 TABLET PO BID UTD
     Route: 048
     Dates: start: 20191216
  15. MICRO K [Concomitant]
     Dosage: 10 MEQ CPSR
     Dates: start: 20200303
  16. CARAFATE [Concomitant]
     Active Substance: SUCRALFATE
     Route: 048
  17. MICARDIS [Concomitant]
     Active Substance: TELMISARTAN
     Dates: start: 20200303
  18. ULTRAM [Concomitant]
     Active Substance: TRAMADOL HYDROCHLORIDE
     Dosage: 1 TABLET BID, PRN
     Route: 048
     Dates: start: 20191215
  19. DIOVAN [Concomitant]
     Active Substance: VALSARTAN
     Dates: start: 20170608

REACTIONS (5)
  - COVID-19 pneumonia [Unknown]
  - Off label use [Unknown]
  - Intentional product misuse [Unknown]
  - Dysphonia [Unknown]
  - Product dispensing error [Unknown]
